FAERS Safety Report 5441867-8 (Version None)
Quarter: 2007Q3

REPORT INFORMATION
  Report Type: 
  Country: None (occurrence: None)
  Receive Date: 20070904
  Receipt Date: 20070824
  Transmission Date: 20080115
  Serious: Yes (Other)
  Sender: FDA-Public Use
  Company Number: BR-JNJFOC-20070805407

PATIENT
  Age: 73 Year
  Sex: Female
  Weight: 80 kg

DRUGS (1)
  1. ACETAMINOPHEN W/ CODEINE [Suspect]
     Indication: PAIN
     Route: 048

REACTIONS (5)
  - DYSPEPSIA [None]
  - FALL [None]
  - HAEMATOMA [None]
  - NAUSEA [None]
  - STOMACH DISCOMFORT [None]
